FAERS Safety Report 8779979 (Version 1)
Quarter: 2012Q4

REPORT INFORMATION
  Report Type: Spontaneous
  Country: US (occurrence: None)
  Receive Date: 20120831
  Receipt Date: 20120831
  Transmission Date: 20130627
  Serious: Yes (Other)
  Sender: FDA-Public Use
  Company Number: None

PATIENT
  Age: 70 Year
  Sex: Male
  Weight: 113.4 kg

DRUGS (2)
  1. PRADAXA [Suspect]
     Dates: start: 20120118, end: 20120808
  2. DIOVANT [Concomitant]

REACTIONS (2)
  - Arthralgia [None]
  - Oedema peripheral [None]
